FAERS Safety Report 10688637 (Version 1)
Quarter: 2015Q1

REPORT INFORMATION
  Report Type: Spontaneous
  Country: US (occurrence: US)
  Receive Date: 20150102
  Receipt Date: 20150102
  Transmission Date: 20150720
  Serious: Yes (Other)
  Sender: FDA-Public Use
  Company Number: US-JNJFOC-20141215521

PATIENT
  Age: 33 Year
  Sex: Female
  Weight: 55.34 kg

DRUGS (1)
  1. ORTHO EVRA [Suspect]
     Active Substance: ETHINYL ESTRADIOL\NORELGESTROMIN
     Indication: CONTRACEPTION
     Route: 062
     Dates: start: 20141124, end: 20141214

REACTIONS (3)
  - Exposure during pregnancy [Not Recovered/Not Resolved]
  - Abortion threatened [Not Recovered/Not Resolved]
  - Pregnancy with contraceptive patch [Not Recovered/Not Resolved]

NARRATIVE: CASE EVENT DATE: 20141217
